FAERS Safety Report 12163559 (Version 2)
Quarter: 2016Q2

REPORT INFORMATION
  Report Type: Report from Study
  Country: CA (occurrence: CA)
  Receive Date: 20160309
  Receipt Date: 20160407
  Transmission Date: 20160815
  Serious: Yes (Hospitalization)
  Sender: FDA-Public Use
  Company Number: CA-JNJFOC-20160222186

PATIENT
  Age: 41 Year
  Sex: Female

DRUGS (1)
  1. REMICADE [Suspect]
     Active Substance: INFLIXIMAB
     Indication: CROHN^S DISEASE
     Route: 042

REACTIONS (5)
  - Proctectomy [Recovered/Resolved]
  - Hysterectomy [Recovered/Resolved]
  - Product use issue [Unknown]
  - Off label use [Unknown]
  - Ileostomy closure [Unknown]

NARRATIVE: CASE EVENT DATE: 201602
